FAERS Safety Report 17380858 (Version 1)
Quarter: 2020Q1

REPORT INFORMATION
  Report Type: Spontaneous
  Country: US (occurrence: US)
  Receive Date: 20200206
  Receipt Date: 20200206
  Transmission Date: 20200409
  Serious: No
  Sender: FDA-Public Use
  Company Number: None

PATIENT
  Sex: Male

DRUGS (2)
  1. AMITIZA [Suspect]
     Active Substance: LUBIPROSTONE
  2. LINZESS [Suspect]
     Active Substance: LINACLOTIDE

REACTIONS (1)
  - Drug ineffective [None]
